FAERS Safety Report 8435947-2 (Version None)
Quarter: 2012Q2

REPORT INFORMATION
  Report Type: 
  Country: None (occurrence: None)
  Receive Date: 20120608
  Receipt Date: 20120608
  Transmission Date: 20120825
  Serious: Yes (Hospitalization)
  Sender: FDA-Public Use
  Company Number: None

PATIENT
  Age: 56 Year
  Sex: Male
  Weight: 86.9 kg

DRUGS (1)
  1. CEFAZOLIN [Suspect]
     Indication: PREOPERATIVE CARE
     Dosage: 5 ML, GIVEN BEFORE STOPPED, SINGLE DOSE, IV DRIP
     Route: 041
     Dates: start: 20120606, end: 20120606

REACTIONS (6)
  - NAUSEA [None]
  - VOMITING [None]
  - MEMORY IMPAIRMENT [None]
  - SINUS TACHYCARDIA [None]
  - PAIN [None]
  - HYPERHIDROSIS [None]
